FAERS Safety Report 12134072 (Version 2)
Quarter: 2016Q1

REPORT INFORMATION
  Report Type: Spontaneous
  Country: CA (occurrence: CA)
  Receive Date: 20160301
  Receipt Date: 20160303
  Transmission Date: 20160526
  Serious: Yes (Hospitalization, Other)
  Sender: FDA-Public Use
  Company Number: CA-GLAXOSMITHKLINE-CA2016029151

PATIENT
  Age: 58 Year
  Sex: Male

DRUGS (15)
  1. NICOTINE. [Suspect]
     Active Substance: NICOTINE
     Indication: PRODUCT USED FOR UNKNOWN INDICATION
     Dosage: DOSAGE FORM: INHALATION, AS NEEDED
     Route: 055
     Dates: start: 20140326, end: 20140326
  2. ATIVAN [Suspect]
     Active Substance: LORAZEPAM
     Dosage: DOSAGE FORM: UNSPECIFIED, AS NEEDED
     Route: 060
     Dates: start: 20140325, end: 20140327
  3. EFFEXOR [Interacting]
     Active Substance: VENLAFAXINE HYDROCHLORIDE
     Indication: MAJOR DEPRESSION
     Dosage: 75 MG, QD
     Route: 065
     Dates: start: 20140325, end: 20140325
  4. IMOVANE [Interacting]
     Active Substance: ZOPICLONE
     Dosage: DOSAGE FORM: UNSPECIFIED
     Route: 065
  5. NICOTINE. [Suspect]
     Active Substance: NICOTINE
     Indication: PRODUCT USED FOR UNKNOWN INDICATION
     Dosage: 1 DF, QD
     Route: 048
     Dates: start: 20140326
  6. KETOCONAZOLE. [Suspect]
     Active Substance: KETOCONAZOLE
     Indication: PRODUCT USED FOR UNKNOWN INDICATION
     Dosage: DOSAGE FORM: UNSPECIFIED
     Route: 065
     Dates: start: 20140327, end: 20140409
  7. SEROQUEL [Interacting]
     Active Substance: QUETIAPINE FUMARATE
     Indication: PRODUCT USED FOR UNKNOWN INDICATION
     Dosage: DOSAGE FORM: UNSPECIFIED
     Route: 065
     Dates: start: 20140331, end: 20140425
  8. SEROQUEL [Interacting]
     Active Substance: QUETIAPINE FUMARATE
     Dosage: DOSAGE FORM: UNSPECIFIED
     Route: 065
     Dates: start: 20140328, end: 20140402
  9. EFFEXOR [Interacting]
     Active Substance: VENLAFAXINE HYDROCHLORIDE
     Indication: FLASHBACK
     Dosage: 150 MG, UNK
     Route: 065
     Dates: start: 20140326, end: 20140329
  10. ATIVAN [Suspect]
     Active Substance: LORAZEPAM
     Indication: SLEEP DISORDER THERAPY
     Dosage: DOSAGE FORM: UNSPECIFIED, AN EXTRA 2 DOSE (4 MG) AT APPROXIMATELY 8PM
     Route: 060
     Dates: start: 20140328
  11. MULTIVITAMINS [Concomitant]
     Active Substance: VITAMINS
     Indication: PRODUCT USED FOR UNKNOWN INDICATION
     Dosage: DOSAGE FORM: UNSPECIFIED
     Route: 065
  12. SEROQUEL [Interacting]
     Active Substance: QUETIAPINE FUMARATE
     Dosage: DOSAGE FORM: UNSPECIFIED
     Route: 065
     Dates: start: 20140326, end: 20140326
  13. EFFEXOR [Interacting]
     Active Substance: VENLAFAXINE HYDROCHLORIDE
     Indication: POST-TRAUMATIC STRESS DISORDER
     Dosage: UNK
     Route: 065
     Dates: end: 20140402
  14. SEROQUEL [Interacting]
     Active Substance: QUETIAPINE FUMARATE
     Dosage: DOSAGE FORM: UNSPECIFIED
     Route: 065
     Dates: start: 20140327, end: 20140327
  15. IMOVANE [Interacting]
     Active Substance: ZOPICLONE
     Indication: SLEEP DISORDER
     Dosage: DOSAGE FORM: UNSPECIFIED
     Route: 065
     Dates: start: 20140325, end: 20140329

REACTIONS (12)
  - Jaw fracture [Not Recovered/Not Resolved]
  - Drug hypersensitivity [Unknown]
  - Drug interaction [Recovered/Resolved]
  - Accidental overdose [Not Recovered/Not Resolved]
  - Pain [Not Recovered/Not Resolved]
  - Intentional product misuse [Unknown]
  - Lip pain [Not Recovered/Not Resolved]
  - Drug effect decreased [Unknown]
  - Insomnia [Not Recovered/Not Resolved]
  - Dizziness [Not Recovered/Not Resolved]
  - Loss of consciousness [Not Recovered/Not Resolved]
  - Nerve injury [Not Recovered/Not Resolved]

NARRATIVE: CASE EVENT DATE: 201403
